FAERS Safety Report 12930409 (Version 1)
Quarter: 2016Q4

REPORT INFORMATION
  Report Type: Spontaneous
  Country: US (occurrence: US)
  Receive Date: 20161111
  Receipt Date: 20161111
  Transmission Date: 20170207
  Serious: No
  Sender: FDA-Public Use
  Company Number: None

PATIENT
  Age: 2 Year
  Sex: Male

DRUGS (1)
  1. OXYCODONE HYDROCHLORIDE. [Suspect]
     Active Substance: OXYCODONE HYDROCHLORIDE
     Dosage: LIQUID

REACTIONS (6)
  - Incorrect dose administered [None]
  - Disorientation [None]
  - Altered state of consciousness [None]
  - Pain [None]
  - Drug dispensing error [None]
  - Constipation [None]

NARRATIVE: CASE EVENT DATE: 2016
